FAERS Safety Report 20419882 (Version 2)
Quarter: 2022Q1

REPORT INFORMATION
  Report Type: Spontaneous
  Country: JP (occurrence: JP)
  Receive Date: 20220203
  Receipt Date: 20220213
  Transmission Date: 20220423
  Serious: Yes (Other)
  Sender: FDA-Public Use
  Company Number: JP-JNJFOC-20220200552

PATIENT
  Sex: Male

DRUGS (3)
  1. CONCERTA [Suspect]
     Active Substance: METHYLPHENIDATE HYDROCHLORIDE
     Indication: Product used for unknown indication
     Dosage: DOSE UNKNOWN
     Route: 048
  2. CONCERTA [Suspect]
     Active Substance: METHYLPHENIDATE HYDROCHLORIDE
     Route: 048
  3. CONCERTA [Suspect]
     Active Substance: METHYLPHENIDATE HYDROCHLORIDE
     Route: 048

REACTIONS (10)
  - Withdrawal syndrome [Unknown]
  - Euphoric mood [Unknown]
  - Hot flush [Unknown]
  - Hyperhidrosis [Unknown]
  - Asthenia [Unknown]
  - Malaise [Unknown]
  - Depression [Unknown]
  - Blood pressure increased [Unknown]
  - Dizziness [Unknown]
  - Drug ineffective [Unknown]
